FAERS Safety Report 23972085 (Version 1)
Quarter: 2024Q2

REPORT INFORMATION
  Report Type: Report from Study
  Country: US (occurrence: US)
  Receive Date: 20240613
  Receipt Date: 20240613
  Transmission Date: 20240716
  Serious: Yes (Hospitalization)
  Sender: FDA-Public Use
  Company Number: US-002147023-NVSC2024US084276

PATIENT
  Sex: Female

DRUGS (1)
  1. KESIMPTA [Suspect]
     Active Substance: OFATUMUMAB
     Indication: Product used for unknown indication
     Dosage: UNK
     Route: 065

REACTIONS (10)
  - Multiple sclerosis relapse [Unknown]
  - Gait disturbance [Unknown]
  - Urinary incontinence [Unknown]
  - Musculoskeletal disorder [Unknown]
  - Headache [Unknown]
  - Hypoaesthesia [Unknown]
  - Muscle strain [Unknown]
  - Chest pain [Unknown]
  - Confusional state [Unknown]
  - Product supply issue [Unknown]
